FAERS Safety Report 7774098-7 (Version None)
Quarter: 2011Q3

REPORT INFORMATION
  Report Type: 
  Country: None (occurrence: None)
  Receive Date: 20110923
  Receipt Date: 20110919
  Transmission Date: 20111222
  Serious: Yes (Other)
  Sender: FDA-Public Use
  Company Number: US-PFIZER INC-2011224385

PATIENT
  Sex: Female

DRUGS (5)
  1. CYMBALTA [Concomitant]
     Indication: DEPRESSION
     Dosage: 60 MG, 1X/DAY
  2. GEODON [Concomitant]
     Dosage: 80 MG, 1X/DAY
     Dates: start: 20050101
  3. NEURONTIN [Suspect]
     Dosage: UNK
  4. TRAZODONE [Concomitant]
     Indication: SLEEP DISORDER
     Dosage: 100 MG, 1X/DAY
  5. CLONAZEPAM [Concomitant]
     Indication: ANXIETY
     Dosage: 1 MG, 3X/DAY

REACTIONS (1)
  - PSYCHOTIC DISORDER [None]
